FAERS Safety Report 10647961 (Version 1)
Quarter: 2014Q4

REPORT INFORMATION
  Report Type: Spontaneous
  Country: NL (occurrence: NL)
  Receive Date: 20141212
  Receipt Date: 20141212
  Transmission Date: 20150529
  Serious: Yes (Other)
  Sender: FDA-Public Use
  Company Number: NL-BIOGENIDEC-2014BI014560

PATIENT
  Age: 31 Year
  Sex: Female

DRUGS (1)
  1. AVONEX [Suspect]
     Active Substance: INTERFERON BETA-1A
     Indication: MULTIPLE SCLEROSIS
     Route: 030
     Dates: start: 20120426, end: 20140122

REACTIONS (3)
  - Small size placenta [Unknown]
  - Pregnancy [Recovered/Resolved]
  - Placental disorder [Unknown]

NARRATIVE: CASE EVENT DATE: 20131215
